FAERS Safety Report 5475697-8 (Version None)
Quarter: 2007Q4

REPORT INFORMATION
  Report Type: 
  Country: None (occurrence: None)
  Receive Date: 20071001
  Receipt Date: 20071001
  Transmission Date: 20080405
  Serious: Yes (Life-Threatening, Hospitalization, Disabling)
  Sender: FDA-Public Use
  Company Number: None

PATIENT
  Sex: Male
  Weight: 81.6475 kg

DRUGS (2)
  1. SEROQUEL [Suspect]
     Indication: BIPOLAR I DISORDER
     Dosage: 100MG  DAILY  PO
     Route: 048
     Dates: start: 20070828, end: 20070902
  2. VALPROIC ACID [Concomitant]

REACTIONS (8)
  - AKATHISIA [None]
  - DYSKINESIA [None]
  - DYSPNOEA [None]
  - ILL-DEFINED DISORDER [None]
  - LARYNGOSPASM [None]
  - MUSCLE SPASMS [None]
  - PHARYNGEAL DISORDER [None]
  - RESTLESSNESS [None]
